FAERS Safety Report 6696198-5 (Version None)
Quarter: 2010Q2

REPORT INFORMATION
  Report Type: 
  Country: None (occurrence: None)
  Receive Date: 20100426
  Receipt Date: 20100412
  Transmission Date: 20101027
  Serious: Yes (Hospitalization, Other)
  Sender: FDA-Public Use
  Company Number: US-ASTRAZENECA-2007UW01960

PATIENT
  Age: 53 Year
  Sex: Male
  Weight: 96.2 kg

DRUGS (45)
  1. SEROQUEL [Suspect]
     Indication: BIPOLAR DISORDER
     Dosage: 25 TO 200 MG
     Route: 048
     Dates: start: 20050621, end: 20050801
  2. SEROQUEL [Suspect]
     Indication: DEPRESSION
     Dosage: 25 TO 200 MG
     Route: 048
     Dates: start: 20050621, end: 20050801
  3. SEROQUEL [Suspect]
     Route: 048
     Dates: start: 20050920
  4. SEROQUEL [Suspect]
     Route: 048
     Dates: start: 20050920
  5. RISPERDAL [Concomitant]
     Dosage: 0.5-1MG
     Dates: start: 20060601
  6. RISPERDAL [Concomitant]
     Route: 048
     Dates: start: 20061214
  7. LORAZEPAM [Concomitant]
     Dates: start: 20050714
  8. FLUOXETINE [Concomitant]
     Dates: start: 20050714
  9. MEPERIDINE HCL [Concomitant]
     Dates: start: 20050812
  10. LAMICTAL [Concomitant]
     Indication: DEPRESSION
     Dates: start: 20050816
  11. LAMICTAL [Concomitant]
     Dates: start: 20051109
  12. LAMICTAL [Concomitant]
     Dosage: 100 TO 200 MG
     Dates: start: 20070705
  13. FEXOFENADINE [Concomitant]
     Dates: start: 20060113
  14. NASACORT AQ [Concomitant]
     Dosage: 120 SPRAY 16.5 GM
     Dates: start: 20051006
  15. HYDROCODONE BITARTRATE AND ACETAMINOPHEN [Concomitant]
     Dosage: 10 MG/500 MG
     Dates: start: 20060208
  16. HYDROCODONE BITARTRATE AND ACETAMINOPHEN [Concomitant]
     Dosage: 7.5 MG/325 MG
     Dates: start: 20051213
  17. HYDROCODONE BITARTRATE AND ACETAMINOPHEN [Concomitant]
     Dosage: 5 MG/500 MG
     Dates: start: 20051223
  18. HYDROCODONE BITARTRATE AND ACETAMINOPHEN [Concomitant]
     Dosage: 10 MG/325 MG
     Dates: start: 20051115
  19. CEPHALEXIN [Concomitant]
  20. PROPOXYPHENE HCL CAP [Concomitant]
  21. PROPOXYPHENE HCL CAP [Concomitant]
     Dates: start: 20051103
  22. ACTOS [Concomitant]
     Dates: start: 20060113
  23. ACTOS [Concomitant]
     Dates: start: 20060126
  24. TRAMADOL HCL [Concomitant]
     Dates: start: 20060113
  25. METFORMIN [Concomitant]
     Dates: start: 20060215
  26. METFORMIN [Concomitant]
     Dates: start: 20060404
  27. PRAVACHOL [Concomitant]
     Dates: start: 20060215
  28. ATIVAN [Concomitant]
     Indication: INSOMNIA
     Dosage: 0.5 TO 1 MG
     Dates: start: 19981023
  29. ATIVAN [Concomitant]
     Indication: ANXIETY
     Dosage: 0.5 TO 1 MG
     Dates: start: 19981023
  30. ATIVAN [Concomitant]
     Dosage: ONE TO TWO AT BEDTIME
     Route: 048
     Dates: start: 20050815
  31. ATIVAN [Concomitant]
     Dosage: ONE TO TWO AT BEDTIME
     Route: 048
     Dates: start: 20050815
  32. PROZAC [Concomitant]
     Indication: DEPRESSION
     Route: 048
     Dates: start: 19990415
  33. PROZAC [Concomitant]
     Route: 048
  34. VIAGRA [Concomitant]
     Dosage: 100 MG, HALF TABLET AS REQUIRED
     Route: 048
     Dates: start: 20000112
  35. ABILIFY [Concomitant]
     Dates: start: 20060501, end: 20060601
  36. ABILIFY [Concomitant]
     Dates: start: 20060523
  37. ALLEGRA [Concomitant]
     Dosage: 150 TO 180 MG
     Route: 048
     Dates: start: 20050919
  38. AMBIEN [Concomitant]
     Indication: SLEEP DISORDER
     Dosage: 5 TO 10 MG
     Dates: start: 19980813
  39. LORTAB [Concomitant]
     Dosage: 75/500
     Dates: start: 20051101
  40. CELEXA [Concomitant]
     Dates: start: 20060916
  41. ZOLOFT [Concomitant]
     Dates: start: 19980817
  42. DITROPAN XL [Concomitant]
     Dosage: 5 TO 10 MG
     Dates: start: 20060905
  43. UROXATRAL [Concomitant]
     Dates: start: 20040426
  44. TRAZODONE HCL [Concomitant]
     Indication: INSOMNIA
     Dates: start: 19981230
  45. EFFEXOR XR [Concomitant]

REACTIONS (15)
  - ACCIDENTAL OVERDOSE [None]
  - ANXIETY [None]
  - DEPRESSED MOOD [None]
  - DIABETES MELLITUS INADEQUATE CONTROL [None]
  - ERECTILE DYSFUNCTION [None]
  - HYPERLIPIDAEMIA [None]
  - INSOMNIA [None]
  - IRRITABILITY [None]
  - NASAL SEPTAL OPERATION [None]
  - OVERWEIGHT [None]
  - SHOULDER ARTHROPLASTY [None]
  - SLEEP APNOEA SYNDROME [None]
  - SLEEP DISORDER [None]
  - SUICIDE ATTEMPT [None]
  - TYPE 2 DIABETES MELLITUS [None]
